FAERS Safety Report 4302111-8 (Version None)
Quarter: 2004Q1

REPORT INFORMATION
  Report Type: 
  Country: None (occurrence: None)
  Receive Date: 20040220
  Receipt Date: 20040212
  Transmission Date: 20041129
  Serious: Yes (Hospitalization)
  Sender: FDA-Public Use
  Company Number: K200400188

PATIENT
  Age: 81 Year
  Sex: Female

DRUGS (3)
  1. ALTACE [Suspect]
     Dosage: 1.25 MG, QD, ORAL
     Route: 048
     Dates: start: 20020101
  2. ALTACE [Suspect]
     Dosage: 2.5MG, QD
     Dates: end: 20020101
  3. LASILEX (FUROSEMIDE) TABLET [Suspect]
     Dosage: ORAL
     Route: 048

REACTIONS (2)
  - DEHYDRATION [None]
  - RENAL FAILURE ACUTE [None]
